FAERS Safety Report 23159486 (Version 1)
Quarter: 2023Q4

REPORT INFORMATION
  Report Type: Spontaneous
  Country: IE (occurrence: IE)
  Receive Date: 20231108
  Receipt Date: 20231108
  Transmission Date: 20240110
  Serious: Yes (Hospitalization, Other)
  Sender: FDA-Public Use
  Company Number: None

PATIENT
  Sex: Male

DRUGS (13)
  1. CARBIDOPA\LEVODOPA [Suspect]
     Active Substance: CARBIDOPA\LEVODOPA
     Dosage: 2 CASSETTE, FREQUENCY: CONTINUOUS ROUTE OF ADMIN (FREE TEXT): PERCUTANEOUS J-TUBE
     Route: 065
     Dates: start: 20190402
  2. CARBIDOPA\LEVODOPA [Suspect]
     Active Substance: CARBIDOPA\LEVODOPA
     Dosage: ROUTE OF ADMIN (FREE TEXT): PERCUTANEOUS J-TUBE
     Route: 065
  3. CARBIDOPA\LEVODOPA [Suspect]
     Active Substance: CARBIDOPA\LEVODOPA
     Indication: Parkinson^s disease
     Dosage: DAY PUMP CR 5.2MLS/HR. MD 9MLS/HR. ED AT 3.5MLS/HR. 6 HR LOCKOUT MAX 4 EXTRA DOSES IN 24 HR.FREQUENC
     Route: 065
     Dates: start: 2023
  4. CARBIDOPA\LEVODOPA [Suspect]
     Active Substance: CARBIDOPA\LEVODOPA
     Dosage: DAY PUMP CR 5.4MLS/HR. MD 9 MLS/HR. ED AT 3.5MLS/HR. 6 HR LOCKOUT MAX 4 EXTRA DOSES IN 24 HR.FREQUEN
     Route: 065
     Dates: end: 2023
  5. QUETIAPINE [Suspect]
     Active Substance: QUETIAPINE
     Indication: Product used for unknown indication
     Dosage: UNK
     Route: 065
  6. ARIPIPRAZOLE [Concomitant]
     Active Substance: ARIPIPRAZOLE
     Indication: Product used for unknown indication
     Dosage: 15 MG, QD
     Route: 065
  7. AVODART [Concomitant]
     Active Substance: DUTASTERIDE
     Indication: Product used for unknown indication
     Dosage: 0.5 MG, QD
     Route: 065
  8. PRAMIPEXOLE [Concomitant]
     Active Substance: PRAMIPEXOLE
     Indication: Product used for unknown indication
     Dosage: 0.26 MG
     Route: 065
  9. NEXIUM [Concomitant]
     Active Substance: ESOMEPRAZOLE MAGNESIUM
     Indication: Product used for unknown indication
     Dosage: 40 MG, QD
     Route: 065
  10. SINEMET CR [Concomitant]
     Active Substance: CARBIDOPA\LEVODOPA
     Indication: Product used for unknown indication
     Dosage: 50/200 MG AT NIGHT
     Route: 065
  11. TRAZODONE [Concomitant]
     Active Substance: TRAZODONE HYDROCHLORIDE
     Indication: Product used for unknown indication
     Dosage: 2.5 MG, QD
     Route: 065
  12. UROTECIN [Concomitant]
     Indication: Product used for unknown indication
     Dosage: 4 MG, QD
     Route: 065
  13. ZOPICLONE [Concomitant]
     Active Substance: ZOPICLONE
     Indication: Product used for unknown indication
     Dosage: 7.5 MG
     Route: 065

REACTIONS (14)
  - Hospitalisation [Not Recovered/Not Resolved]
  - Disease risk factor [Not Recovered/Not Resolved]
  - Tearfulness [Not Recovered/Not Resolved]
  - Gait inability [Not Recovered/Not Resolved]
  - Gait disturbance [Not Recovered/Not Resolved]
  - Tachyphrenia [Not Recovered/Not Resolved]
  - Aggression [Not Recovered/Not Resolved]
  - Emotional distress [Not Recovered/Not Resolved]
  - Dyskinesia [Not Recovered/Not Resolved]
  - Intentional product misuse [Not Recovered/Not Resolved]
  - Abnormal behaviour [Not Recovered/Not Resolved]
  - Device dislocation [Recovered/Resolved]
  - Incorrect route of product administration [Recovered/Resolved]
  - Freezing phenomenon [Recovering/Resolving]
